FAERS Safety Report 9046487 (Version 1)
Quarter: 2013Q1

REPORT INFORMATION
  Report Type: Spontaneous
  Country: US (occurrence: None)
  Receive Date: 20130128
  Receipt Date: 20130128
  Transmission Date: 20140127
  Serious: No
  Sender: FDA-Public Use
  Company Number: None

PATIENT
  Age: 40 Year
  Sex: Female
  Weight: 51.26 kg

DRUGS (1)
  1. BOTOX [Suspect]
     Indication: SKIN COSMETIC PROCEDURE
     Dosage: EVERY MONTH

REACTIONS (7)
  - Injection site pruritus [None]
  - Injection site erythema [None]
  - Eye swelling [None]
  - Eye pruritus [None]
  - Dysphonia [None]
  - Pruritus [None]
  - Pruritus [None]
